FAERS Safety Report 8770142 (Version 1)
Quarter: 2012Q4

REPORT INFORMATION
  Report Type: 
  Country: FR (occurrence: FR)
  Receive Date: 20120905
  Receipt Date: 20120905
  Transmission Date: 20130627
  Serious: Yes (Other)
  Sender: FDA-Public Use
  Company Number: FR-NOVOPROD-358868

PATIENT
  Age: 45 Year
  Sex: Female

DRUGS (4)
  1. VICTOZA [Suspect]
     Indication: TYPE 2 DIABETES MELLITUS
     Dosage: 1.8 mg, qd
     Route: 058
     Dates: start: 201106, end: 20120514
  2. GLUCOPHAGE [Suspect]
     Indication: PRODUCT USED FOR UNKNOWN INDICATION
     Dosage: 2 g, qd
     Route: 048
     Dates: start: 2004, end: 20120514
  3. DIAMICRON [Suspect]
     Indication: PRODUCT USED FOR UNKNOWN INDICATION
     Dosage: 30 mg, qd
     Route: 048
     Dates: start: 201102, end: 20120514
  4. GLUCOR [Suspect]
     Indication: PRODUCT USED FOR UNKNOWN INDICATION
     Dosage: 150 mg, qd
     Route: 048
     Dates: start: 201106, end: 20120514

REACTIONS (2)
  - Abortion spontaneous [Recovered/Resolved]
  - Exposure during pregnancy [Recovered/Resolved]
